FAERS Safety Report 7145342-4 (Version None)
Quarter: 2010Q4

REPORT INFORMATION
  Report Type: 
  Country: None (occurrence: None)
  Receive Date: 20101208
  Receipt Date: 20101130
  Transmission Date: 20110411
  Serious: Yes (Death, Hospitalization, Other)
  Sender: FDA-Public Use
  Company Number: FR-NOVOPROD-319437

PATIENT
  Age: 85 Year
  Sex: Female

DRUGS (6)
  1. NOVONORM [Suspect]
     Indication: DIABETES MELLITUS
     Dosage: 2 MG, QD
     Route: 048
  2. MEMANTINE HCL [Suspect]
     Indication: PRODUCT USED FOR UNKNOWN INDICATION
     Dosage: 10 MG, QD
     Route: 048
     Dates: start: 20080101, end: 20101023
  3. RISPERDAL [Suspect]
     Dosage: 1 MG, QD
     Route: 048
  4. PREVISCAN                          /00261401/ [Suspect]
     Indication: PRODUCT USED FOR UNKNOWN INDICATION
     Dosage: 20 MG, QD
     Route: 048
     Dates: start: 20090101
  5. FUROSEMIDE [Suspect]
     Indication: HYPERTENSION
     Dosage: 20 MG, QD
     Route: 048
  6. COVERSYL                           /00790702/ [Suspect]
     Indication: HYPERTENSION
     Dosage: 2.5 MG, QD
     Route: 048

REACTIONS (2)
  - PANCREATITIS ACUTE [None]
  - PYREXIA [None]
